FAERS Safety Report 9096291 (Version 2)
Quarter: 2013Q4

REPORT INFORMATION
  Report Type: Report from Study
  Country: DE (occurrence: DE)
  Receive Date: 20130207
  Receipt Date: 20131206
  Transmission Date: 20140711
  Serious: Yes (Hospitalization)
  Sender: FDA-Public Use
  Company Number: DE-ROCHE-1187895

PATIENT
  Age: 77 Year
  Sex: Male
  Weight: 87 kg

DRUGS (4)
  1. METHOXY POLYETHYLENE GLYCOL-EPOETIN BETA [Suspect]
     Indication: NEPHROGENIC ANAEMIA
     Route: 058
     Dates: start: 20110426, end: 20120729
  2. PLAVIX [Concomitant]
     Route: 065
     Dates: end: 20120306
  3. FALITHROM [Concomitant]
     Dosage: DOSAGE:1/2-0-0
     Route: 065
     Dates: end: 20120306
  4. FALITHROM [Concomitant]
     Route: 065
     Dates: start: 20120325

REACTIONS (3)
  - Hiatus hernia [Recovered/Resolved]
  - Mucosal haemorrhage [Recovered/Resolved]
  - Gastrointestinal haemorrhage [Recovered/Resolved]
